FAERS Safety Report 5471080-X (Version None)
Quarter: 2007Q3

REPORT INFORMATION
  Report Type: 
  Country: None (occurrence: None)
  Receive Date: 20070925
  Receipt Date: 20070911
  Transmission Date: 20080115
  Serious: Yes (Hospitalization)
  Sender: FDA-Public Use
  Company Number: POMP-11191

PATIENT
  Age: 1 Year
  Sex: Female

DRUGS (1)
  1. MYOZYME [Suspect]
     Indication: GLYCOGEN STORAGE DISEASE TYPE II
     Dates: start: 20060626

REACTIONS (2)
  - CHILDHOOD DISINTEGRATIVE DISORDER [None]
  - DYSPHAGIA [None]
